FAERS Safety Report 5467908-X (Version None)
Quarter: 2007Q3

REPORT INFORMATION
  Report Type: 
  Country: None (occurrence: None)
  Receive Date: 20070820
  Receipt Date: 20070625
  Transmission Date: 20080115
  Serious: No
  Sender: FDA-Public Use
  Company Number: WAES 0701USA03174

PATIENT
  Age: 60 Year
  Sex: Female
  Weight: 94.3482 kg

DRUGS (22)
  1. JANUVIA [Suspect]
     Indication: TYPE 2 DIABETES MELLITUS
     Dosage: 100 MG/DAILY/PO
     Route: 048
     Dates: start: 20061030, end: 20070108
  2. AVANDIA [Concomitant]
  3. LOPROX [Concomitant]
  4. LOTREL [Concomitant]
  5. MAXAIR [Concomitant]
  6. MAXZIDE [Concomitant]
  7. NOVAHISTINE ELIXIR [Concomitant]
  8. OMACOR [Concomitant]
  9. OS-CAL + D [Concomitant]
  10. RHINOCORT [Concomitant]
  11. SINGULAIR [Concomitant]
  12. ACETAMINOPHEN [Concomitant]
  13. ASCORBIC ACID [Concomitant]
  14. ASPIRIN [Concomitant]
  15. BENZONATATE [Concomitant]
  16. DEXTROMETHORPHAN HYDROBROMIDE [Concomitant]
  17. ECHINACEA (UNSPECIFIED) [Concomitant]
  18. METFORMIN [Concomitant]
  19. UREA [Concomitant]
  20. VITAMIN (UNSPECIFIED) [Concomitant]
  21. ZINC (UNSPECIFIED) [Concomitant]
  22. [THERAPY UNSPECIFIED] [Concomitant]

REACTIONS (2)
  - ALOPECIA [None]
  - FURUNCLE [None]
